FAERS Safety Report 19809208 (Version 2)
Quarter: 2021Q3

REPORT INFORMATION
  Report Type: Spontaneous
  Country: US (occurrence: US)
  Receive Date: 20210908
  Receipt Date: 20210921
  Transmission Date: 20211014
  Serious: Yes (Other)
  Sender: FDA-Public Use
  Company Number: US-009507513-2109USA001313

PATIENT
  Age: 64 Year
  Sex: Male

DRUGS (1)
  1. TICE BCG [Suspect]
     Active Substance: BACILLUS CALMETTE-GUERIN SUBSTRAIN TICE LIVE ANTIGEN
     Indication: BLADDER CANCER
     Dosage: UNK
     Route: 043
     Dates: start: 20210222, end: 20210405

REACTIONS (6)
  - Bladder dysplasia [Not Recovered/Not Resolved]
  - Antidepressant therapy [Unknown]
  - Dysuria [Not Recovered/Not Resolved]
  - Haematuria [Not Recovered/Not Resolved]
  - Product availability issue [Unknown]
  - Accident at work [Not Recovered/Not Resolved]

NARRATIVE: CASE EVENT DATE: 2021
